FAERS Safety Report 4730319-6 (Version None)
Quarter: 2005Q3

REPORT INFORMATION
  Report Type: 
  Country: None (occurrence: None)
  Receive Date: 20050801
  Receipt Date: 20050720
  Transmission Date: 20060218
  Serious: Yes (Death)
  Sender: FDA-Public Use
  Company Number: FR-JNJFOC-20050204711

PATIENT
  Age: 58 Year
  Sex: Male

DRUGS (4)
  1. DURAGESIC-100 [Suspect]
     Indication: DRUG USE FOR UNKNOWN INDICATION
     Route: 062
  2. CIFLOX [Concomitant]
     Route: 065
  3. FLAGYL [Concomitant]
     Route: 065
  4. ALBUMIN (HUMAN) [Concomitant]
     Route: 065

REACTIONS (1)
  - ENCEPHALOPATHY [None]
